FAERS Safety Report 16674630 (Version 1)
Quarter: 2019Q3

REPORT INFORMATION
  Report Type: Spontaneous
  Country: GR (occurrence: GR)
  Receive Date: 20190806
  Receipt Date: 20190806
  Transmission Date: 20191004
  Serious: Yes (Other)
  Sender: FDA-Public Use
  Company Number: GR-MYLANLABS-2019M1073268

PATIENT
  Age: 20 Year
  Sex: Male

DRUGS (4)
  1. BIPERIDEN [Suspect]
     Active Substance: BIPERIDEN
     Indication: MAJOR DEPRESSION
     Dosage: DOSAGE FORM: UNSPECIFIED
     Route: 065
  2. VENLAFAXINE [Suspect]
     Active Substance: VENLAFAXINE HYDROCHLORIDE
     Indication: MAJOR DEPRESSION
     Dosage: DOSAGE FORM: UNSPECIFIED
     Route: 065
  3. PALIPERIDONE. [Suspect]
     Active Substance: PALIPERIDONE
     Indication: PRODUCT USED FOR UNKNOWN INDICATION
     Dosage: DOSAGE FORM: OROS (ORAL OSMOTIC) THERAPEUTIC SYSTEM TABLET
     Route: 048
  4. LORAZEPAM. [Suspect]
     Active Substance: LORAZEPAM
     Indication: PRODUCT USED FOR UNKNOWN INDICATION
     Dosage: DOSAGE FORM: UNSPECIFIED, (1/2X3)
     Route: 065

REACTIONS (4)
  - Extrapyramidal disorder [Unknown]
  - Major depression [Recovering/Resolving]
  - Sexual dysfunction [Unknown]
  - Condition aggravated [Recovering/Resolving]
